FAERS Safety Report 15261098 (Version 3)
Quarter: 2019Q2

REPORT INFORMATION
  Report Type: Report from Study
  Country: BE (occurrence: BE)
  Receive Date: 20180809
  Receipt Date: 20190402
  Transmission Date: 20190711
  Serious: Yes (Hospitalization, Other)
  Sender: FDA-Public Use
  Company Number: BE-TAKEDA-2017TUS018011

PATIENT
  Age: 72 Year
  Sex: Male

DRUGS (11)
  1. ALDACTONE [Concomitant]
     Active Substance: SPIRONOLACTONE
     Dosage: 25 MG, QD
     Dates: start: 20170829
  2. FORZATEN [Concomitant]
     Active Substance: AMLODIPINE BESYLATE\OLMESARTAN MEDOXOMIL
     Dosage: UNK UNK, QD
     Dates: end: 20170818
  3. PENTASA [Concomitant]
     Active Substance: MESALAMINE
     Dosage: 2 G, QD
  4. SEVIKAR [Concomitant]
     Active Substance: AMLODIPINE BESYLATE\OLMESARTAN MEDOXOMIL
     Dosage: UNK UNK, QD
     Dates: start: 20170829
  5. VEDOLIZUMAB [Suspect]
     Active Substance: VEDOLIZUMAB
     Indication: COLITIS ULCERATIVE
     Dosage: 300 MG, UNK
     Route: 042
     Dates: start: 20170822
  6. METFORMINE [Concomitant]
     Active Substance: METFORMIN HYDROCHLORIDE
     Dosage: 850 MG, BID
     Dates: end: 20170822
  7. PENTASA [Concomitant]
     Active Substance: MESALAMINE
     Dosage: 2 G, BID
     Dates: start: 20170829
  8. D-CURE [Concomitant]
     Active Substance: CHOLECALCIFEROL
     Dosage: UNK
  9. ALDACTONE [Concomitant]
     Active Substance: SPIRONOLACTONE
     Dosage: 25 MG, QD
     Dates: end: 20170822
  10. METFORMAX [Concomitant]
     Active Substance: METFORMIN HYDROCHLORIDE
     Dosage: 850 MG, BID
     Dates: start: 20170829
  11. FRAXIPARINE [Concomitant]
     Active Substance: NADROPARIN CALCIUM
     Dosage: 0.6 ML, BID
     Dates: start: 20170829

REACTIONS (5)
  - Bladder transitional cell carcinoma [Recovered/Resolved]
  - Carotid artery stenosis [Recovered/Resolved]
  - Transient ischaemic attack [Recovered/Resolved]
  - Acute kidney injury [Recovered/Resolved]
  - Deep vein thrombosis [Not Recovered/Not Resolved]

NARRATIVE: CASE EVENT DATE: 20170822
